FAERS Safety Report 14547194 (Version 2)
Quarter: 2018Q1

REPORT INFORMATION
  Report Type: Report from Study
  Country: IT (occurrence: IT)
  Receive Date: 20180219
  Receipt Date: 20180306
  Transmission Date: 20180509
  Serious: Yes (Life-Threatening)
  Sender: FDA-Public Use
  Company Number: IT-ROCHE-2069662

PATIENT
  Age: 63 Year
  Sex: Female

DRUGS (6)
  1. COUMADIN [Concomitant]
     Active Substance: WARFARIN SODIUM
     Route: 065
  2. ATENOLOL. [Concomitant]
     Active Substance: ATENOLOL
     Route: 065
  3. ANASTROZOLE. [Suspect]
     Active Substance: ANASTROZOLE
     Indication: BREAST CANCER
     Dosage: ON 30/SEP/2017, SHE RECEIVED MOST RECENT DOSE OF ANASTROZOLE PRIOR TO THE EVENT.
     Route: 065
     Dates: start: 20170201
  4. VALPRESSION [Concomitant]
     Active Substance: VALSARTAN
     Route: 065
  5. TRASTUZUMAB. [Suspect]
     Active Substance: TRASTUZUMAB
     Indication: BREAST CANCER
     Dosage: ON 22/SEP/2017, SHE RECEIVED MOST RECENT DOSE OF TRASTUZUMAB PRIOR TO THE EVENT.
     Route: 065
     Dates: start: 20161108
  6. OMEPRAZOLE. [Concomitant]
     Active Substance: OMEPRAZOLE
     Route: 065

REACTIONS (3)
  - Atrial fibrillation [Recovered/Resolved with Sequelae]
  - Cardiac arrest [Recovered/Resolved with Sequelae]
  - Venous thrombosis [Recovered/Resolved with Sequelae]

NARRATIVE: CASE EVENT DATE: 20170923
